FAERS Safety Report 4887649-7 (Version None)
Quarter: 2006Q1

REPORT INFORMATION
  Report Type: 
  Country: None (occurrence: None)
  Receive Date: 20060123
  Receipt Date: 20051102
  Transmission Date: 20060701
  Serious: Yes (Death)
  Sender: FDA-Public Use
  Company Number: IT-AVENTIS-200514129EU

PATIENT
  Age: 92 Year
  Sex: Male

DRUGS (5)
  1. CLEXANE [Suspect]
     Indication: DEEP VEIN THROMBOSIS
     Dates: start: 20041126, end: 20041212
  2. ADALAT [Concomitant]
  3. NITRGLYCERIN TRANSDERMAL SYSTEM [Concomitant]
  4. CASODEX [Concomitant]
  5. MADOPAR [Concomitant]

REACTIONS (6)
  - DIARRHOEA HAEMORRHAGIC [None]
  - HAEMATURIA [None]
  - PYREXIA [None]
  - RECTAL HAEMORRHAGE [None]
  - RESPIRATORY DISORDER [None]
  - URINARY TRACT INFECTION [None]
